FAERS Safety Report 10182117 (Version 2)
Quarter: 2018Q3

REPORT INFORMATION
  Report Type: Spontaneous
  Country: US (occurrence: US)
  Receive Date: 20140520
  Receipt Date: 20180903
  Transmission Date: 20181010
  Serious: No
  Sender: FDA-Public Use
  Company Number: US-009507513-1404USA015164

PATIENT
  Age: 25 Year
  Sex: Female
  Weight: 49.89 kg

DRUGS (3)
  1. NUVARING [Suspect]
     Active Substance: ETHINYL ESTRADIOL\ETONOGESTREL
     Indication: OVARIAN CYST
     Dosage: 1 VAGINAL RING, QM,  IN FOR 3 WEEKS, AND OUT FOR 1 WEEK
     Route: 067
     Dates: start: 20130412
  2. PRILOSEC [Concomitant]
     Active Substance: OMEPRAZOLE MAGNESIUM
     Route: 048
  3. NUVARING [Suspect]
     Active Substance: ETHINYL ESTRADIOL\ETONOGESTREL
     Indication: CONTRACEPTION

REACTIONS (5)
  - Vaginal discharge [Unknown]
  - Product use in unapproved indication [Unknown]
  - Nausea [Unknown]
  - Muscle spasms [Unknown]
  - Dysmenorrhoea [Unknown]

NARRATIVE: CASE EVENT DATE: 20130412
